FAERS Safety Report 19395032 (Version 1)
Quarter: 2021Q2

REPORT INFORMATION
  Report Type: Spontaneous
  Country: US (occurrence: US)
  Receive Date: 20210609
  Receipt Date: 20210609
  Transmission Date: 20210717
  Serious: No
  Sender: FDA-Public Use
  Company Number: US-PFIZER INC-2019492943

PATIENT
  Age: 65 Year
  Sex: Male

DRUGS (1)
  1. LYRICA [Suspect]
     Active Substance: PREGABALIN
     Dosage: 500 MG, DAILY, [2 PO (ORALLY) Q (EVERY) AM, 2 PO (ORALLY) AFTERNOON, 1 PO (ORALLY) QHS (BEFORE BED)]
     Route: 048

REACTIONS (1)
  - Dyslexia [Unknown]
